FAERS Safety Report 6664601-2 (Version None)
Quarter: 2010Q1

REPORT INFORMATION
  Report Type: 
  Country: None (occurrence: None)
  Receive Date: 20100330
  Receipt Date: 20091119
  Transmission Date: 20100710
  Serious: Yes (Other)
  Sender: FDA-Public Use
  Company Number: 6056128

PATIENT
  Age: 84 Year
  Sex: Female

DRUGS (1)
  1. LEVOTHYROXINE SODIUM [Suspect]
     Indication: DRUG USE FOR UNKNOWN INDICATION
     Dosage: 1 DOSAGE FORMS, ORAL 50 MICROGRAM TABLETS SEVERAL MONTHS AGO
     Route: 048

REACTIONS (4)
  - ANGINA PECTORIS [None]
  - DYSPNOEA [None]
  - MALAISE [None]
  - MUSCULAR WEAKNESS [None]
